FAERS Safety Report 18061107 (Version 2)
Quarter: 2020Q3

REPORT INFORMATION
  Report Type: Spontaneous
  Country: US (occurrence: US)
  Receive Date: 20200723
  Receipt Date: 20200812
  Transmission Date: 20201103
  Serious: Yes (Death, Other)
  Sender: FDA-Public Use
  Company Number: US-GILEAD-2020-0484795

PATIENT
  Age: 64 Year
  Sex: Male
  Weight: 77 kg

DRUGS (6)
  1. REMDESIVIR. [Suspect]
     Active Substance: REMDESIVIR
     Dosage: 100 MG, QD
     Route: 042
     Dates: start: 20200628, end: 20200701
  2. FUROSEMIDE. [Concomitant]
     Active Substance: FUROSEMIDE
     Indication: OEDEMA
     Dosage: 20 MG
     Route: 042
     Dates: start: 20200701, end: 20200701
  3. TOCILIZUMAB. [Concomitant]
     Active Substance: TOCILIZUMAB
     Indication: CYTOKINE STORM
     Dosage: 400 MG
     Route: 042
     Dates: start: 20200628, end: 20200628
  4. AZTREONAM. [Concomitant]
     Active Substance: AZTREONAM
     Indication: INFECTION
     Dosage: 2000 MG
     Route: 042
     Dates: start: 20200627, end: 20200627
  5. DIMETHICONE. [Concomitant]
     Active Substance: DIMETHICONE
  6. REMDESIVIR. [Suspect]
     Active Substance: REMDESIVIR
     Indication: COVID-19
     Dosage: 100 MG, QD
     Route: 042
     Dates: start: 20200627, end: 20200627

REACTIONS (1)
  - Death [Fatal]

NARRATIVE: CASE EVENT DATE: 20200721
